FAERS Safety Report 4917235-1 (Version None)
Quarter: 2006Q1

REPORT INFORMATION
  Report Type: 
  Country: None (occurrence: None)
  Receive Date: 20060221
  Receipt Date: 20051017
  Transmission Date: 20060701
  Serious: Yes (Hospitalization, Other)
  Sender: FDA-Public Use
  Company Number: US-MERCK-0510USA07694

PATIENT
  Age: 59 Year
  Sex: Male
  Weight: 100 kg

DRUGS (9)
  1. VIOXX [Suspect]
     Indication: ARTHRITIS
     Route: 048
     Dates: start: 20000101, end: 20040930
  2. VIOXX [Suspect]
     Indication: PAIN
     Route: 048
     Dates: start: 20000101, end: 20040930
  3. TOPROL-XL [Concomitant]
     Route: 065
  4. PROTONIX [Concomitant]
     Indication: GASTROOESOPHAGEAL REFLUX DISEASE
     Route: 065
  5. DIATX [Concomitant]
     Route: 065
  6. ALLOPURINOL [Concomitant]
     Indication: GOUT
     Route: 065
  7. PLETAL [Concomitant]
     Route: 065
  8. NEURONTIN [Concomitant]
     Indication: PAIN
     Route: 065
  9. RENAGEL [Concomitant]
     Route: 065

REACTIONS (6)
  - ANXIETY DISORDER [None]
  - CEREBROVASCULAR ACCIDENT [None]
  - DEPRESSION [None]
  - HYPERTENSION [None]
  - MUSCULOSKELETAL DISORDER [None]
  - MYOCARDIAL INFARCTION [None]
